FAERS Safety Report 8493235-2 (Version None)
Quarter: 2012Q3

REPORT INFORMATION
  Report Type: 
  Country: None (occurrence: None)
  Receive Date: 20120706
  Receipt Date: 20120629
  Transmission Date: 20120928
  Serious: Yes (Hospitalization, Other)
  Sender: FDA-Public Use
  Company Number: PHHY2010FR03808

PATIENT
  Sex: Male
  Weight: 73 kg

DRUGS (14)
  1. TASIGNA [Suspect]
     Indication: CHRONIC MYELOID LEUKAEMIA
     Dosage: 800 MG, DAILY
     Route: 048
     Dates: start: 20090311, end: 20100201
  2. LOVENOX [Concomitant]
     Indication: PROPHYLAXIS
     Dosage: 4000 IU, UNK
     Dates: start: 20090601, end: 20091230
  3. FUROSEMIDE [Concomitant]
     Indication: PROPHYLAXIS
     Dosage: 40 MG, DAILY
     Dates: start: 20091001
  4. PERINDOPRIL ERBUMINE [Concomitant]
     Indication: CARDIAC FAILURE
     Dosage: 2 MG, DAILY
     Dates: start: 20090601
  5. POTASSIUM CHLORIDE [Concomitant]
     Indication: HYPOKALAEMIA
     Dosage: 1200 MG, UNK
  6. ACETAMINOPHEN AND TRAMADOL HCL [Concomitant]
     Dosage: 37.5 MG, UNK
     Dates: start: 20090101
  7. FUROSEMIDE [Concomitant]
     Indication: DYSPNOEA
  8. NEURONTIN [Concomitant]
     Indication: CONVULSION
     Dosage: 400 MG, TID
     Route: 048
     Dates: start: 20120401
  9. ALDACTONE [Concomitant]
  10. ASPIRIN [Concomitant]
     Indication: PROPHYLAXIS
     Dosage: 75 MG, DAILY
     Dates: start: 20090601
  11. ATORVASTATIN [Concomitant]
     Indication: DYSLIPIDAEMIA
     Dosage: 40 MG, DAILY
     Dates: start: 20091201
  12. PROCORALAN [Concomitant]
     Indication: ANGINA PECTORIS
     Dosage: 5 MG, DAILY
     Dates: start: 20090801
  13. FENOFIBRATE [Concomitant]
     Indication: DYSLIPIDAEMIA
     Dosage: UNK
     Dates: start: 20091201
  14. PERINDOPRIL ERBUMINE [Concomitant]
     Indication: HYPERTENSION

REACTIONS (7)
  - MUSCULOSKELETAL PAIN [None]
  - INTERMITTENT CLAUDICATION [None]
  - RENAL FAILURE ACUTE [None]
  - CARDIAC FAILURE [None]
  - BONE PAIN [None]
  - DYSPNOEA EXERTIONAL [None]
  - FEMORAL ARTERY OCCLUSION [None]
